FAERS Safety Report 7510234-5 (Version None)
Quarter: 2011Q2

REPORT INFORMATION
  Report Type: 
  Country: None (occurrence: None)
  Receive Date: 20110527
  Receipt Date: 20110523
  Transmission Date: 20111010
  Serious: Yes (Death, Congenital Anomaly, Other)
  Sender: FDA-Public Use
  Company Number: PHHY2011JP44233

PATIENT

DRUGS (1)
  1. CAPTOPRIL [Suspect]
     Dosage: UNK
     Route: 064

REACTIONS (10)
  - NEONATAL RESPIRATORY DISTRESS SYNDROME [None]
  - MATERNAL DRUGS AFFECTING FOETUS [None]
  - FOETAL GROWTH RESTRICTION [None]
  - RENAL APLASIA [None]
  - DEATH [None]
  - SKULL MALFORMATION [None]
  - PULMONARY HYPOPLASIA [None]
  - RENAL FAILURE ACUTE [None]
  - LIMB DEFORMITY [None]
  - DRUG EXPOSURE DURING PREGNANCY [None]
